FAERS Safety Report 21374786 (Version 1)
Quarter: 2022Q3

REPORT INFORMATION
  Report Type: Spontaneous
  Country: US (occurrence: US)
  Receive Date: 20220926
  Receipt Date: 20220926
  Transmission Date: 20221026
  Serious: No
  Sender: FDA-Public Use
  Company Number: US-ALLERGAN-2216040US

PATIENT

DRUGS (1)
  1. LEXAPRO [Suspect]
     Active Substance: ESCITALOPRAM OXALATE
     Indication: Generalised anxiety disorder
     Dosage: UNK

REACTIONS (5)
  - Hormone level abnormal [Unknown]
  - Abnormal dreams [Unknown]
  - Weight increased [Unknown]
  - Menstruation irregular [Unknown]
  - Somnolence [Unknown]
